FAERS Safety Report 6644534-8 (Version None)
Quarter: 2010Q1

REPORT INFORMATION
  Report Type: 
  Country: None (occurrence: None)
  Receive Date: 20100317
  Receipt Date: 20100212
  Transmission Date: 20100710
  Serious: Yes (Hospitalization)
  Sender: FDA-Public Use
  Company Number: DSA_42781_2010

PATIENT
  Age: 84 Year
  Sex: Female

DRUGS (4)
  1. DILTIAZEM HYDROCHLORIDE [Suspect]
     Indication: DRUG USE FOR UNKNOWN INDICATION
     Dosage: (200 MG QD ORAL)
     Route: 048
     Dates: start: 20090725, end: 20090810
  2. HEMIGOXINE NATIVELLE [Concomitant]
  3. MICARDIS HCT [Concomitant]
  4. PREVISCAN [Concomitant]

REACTIONS (6)
  - DEHYDRATION [None]
  - LEUKOCYTOSIS [None]
  - MUCOSAL INFLAMMATION [None]
  - RENAL FAILURE [None]
  - TOXIC SKIN ERUPTION [None]
  - TYPE IV HYPERSENSITIVITY REACTION [None]
